FAERS Safety Report 25105735 (Version 1)
Quarter: 2025Q1

REPORT INFORMATION
  Report Type: Spontaneous
  Country: US (occurrence: US)
  Receive Date: 20250321
  Receipt Date: 20250321
  Transmission Date: 20250409
  Serious: No
  Sender: BRAEBURN PHARMACEUTICALS
  Company Number: US-BRAEBURN-US-BRA-24-001243

PATIENT
  Age: 25 Year
  Sex: Female

DRUGS (1)
  1. BRIXADI [Suspect]
     Active Substance: BUPRENORPHINE
     Indication: Product used for unknown indication
     Dosage: 16 MILLIGRAM, WEEKLY
     Route: 065
     Dates: start: 20241206

REACTIONS (4)
  - Swelling face [Unknown]
  - Lip swelling [Unknown]
  - Throat tightness [Unknown]
  - Dysphagia [Unknown]

NARRATIVE: CASE EVENT DATE: 20241201
